FAERS Safety Report 8990840 (Version 1)
Quarter: 2012Q4

REPORT INFORMATION
  Report Type: Spontaneous
  Country: US (occurrence: None)
  Receive Date: 20121226
  Receipt Date: 20121226
  Transmission Date: 20130627
  Serious: Yes (Other)
  Sender: FDA-Public Use
  Company Number: None

PATIENT
  Age: 37 Year
  Sex: Male
  Weight: 66.68 kg

DRUGS (9)
  1. BACLOFEN [Suspect]
     Indication: MULTIPLE SCLEROSIS
     Dosage: 10mg bid po
     Route: 048
     Dates: start: 20121221, end: 20121222
  2. BACLOFEN [Suspect]
     Indication: SPASMS
     Dosage: 10mg bid po
     Route: 048
     Dates: start: 20121221, end: 20121222
  3. AVONEX [Concomitant]
  4. METHYLPHENIDATE [Concomitant]
  5. CARISOPRODOL [Concomitant]
  6. KETORALAC [Concomitant]
  7. IBUPROFEN -600- [Concomitant]
  8. LISINOPRIL [Concomitant]
  9. NEXIUM [Concomitant]

REACTIONS (7)
  - Anxiety [None]
  - Irritability [None]
  - Nausea [None]
  - Sleep disorder [None]
  - Cognitive disorder [None]
  - Drug interaction [None]
  - Drug intolerance [None]
